FAERS Safety Report 7714018-4 (Version None)
Quarter: 2011Q3

REPORT INFORMATION
  Report Type: 
  Country: None (occurrence: None)
  Receive Date: 20110826
  Receipt Date: 20110811
  Transmission Date: 20111222
  Serious: Yes (Hospitalization)
  Sender: FDA-Public Use
  Company Number: CN-WATSON-2011-13373

PATIENT
  Age: 22 Year
  Sex: Male

DRUGS (1)
  1. VALPROATE SODIUM [Suspect]
     Indication: PRODUCT USED FOR UNKNOWN INDICATION
     Dosage: 50 G, UNKNOWN
     Route: 048

REACTIONS (6)
  - FALSE POSITIVE INVESTIGATION RESULT [None]
  - PUPILS UNEQUAL [None]
  - INTENTIONAL OVERDOSE [None]
  - DEPRESSED LEVEL OF CONSCIOUSNESS [None]
  - DRUG LEVEL INCREASED [None]
  - AMMONIA INCREASED [None]
